FAERS Safety Report 8201042-0 (Version None)
Quarter: 2012Q1

REPORT INFORMATION
  Report Type: 
  Country: None (occurrence: None)
  Receive Date: 20120312
  Receipt Date: 20120301
  Transmission Date: 20120608
  Serious: Yes (Other)
  Sender: FDA-Public Use
  Company Number: CA-JNJFOC-20120301393

PATIENT
  Sex: Male

DRUGS (5)
  1. INSULIN [Concomitant]
     Route: 065
  2. REMICADE [Suspect]
     Indication: CROHN'S DISEASE
     Route: 042
  3. IMURAN [Concomitant]
     Route: 065
  4. CRESTOR [Concomitant]
     Route: 065
  5. MESALAMINE [Concomitant]
     Route: 065

REACTIONS (2)
  - DERMAL CYST [None]
  - SKIN LESION [None]
